FAERS Safety Report 9671292 (Version 1)
Quarter: 2013Q4

REPORT INFORMATION
  Report Type: Spontaneous
  Country: US (occurrence: US)
  Receive Date: 20131106
  Receipt Date: 20131106
  Transmission Date: 20140711
  Serious: Yes (Hospitalization)
  Sender: FDA-Public Use
  Company Number: US-B.I. PHARMACEUTICALS,INC./RIDGEFIELD-2013-BI-35068GD

PATIENT
  Age: 64 Year
  Sex: Female

DRUGS (3)
  1. PRADAXA [Suspect]
     Indication: ATRIAL FIBRILLATION
  2. ALLOPURINOL [Suspect]
  3. AMIODARONE [Suspect]
     Indication: ATRIAL FIBRILLATION

REACTIONS (6)
  - Lung infiltration [Recovered/Resolved]
  - Pulmonary alveolar haemorrhage [Recovered/Resolved]
  - Dyspnoea [Recovered/Resolved]
  - Haemoptysis [Recovered/Resolved]
  - Microscopic polyangiitis [Unknown]
  - Renal failure [Not Recovered/Not Resolved]
